FAERS Safety Report 19257775 (Version 1)
Quarter: 2021Q2

REPORT INFORMATION
  Report Type: Report from Study
  Country: CA (occurrence: CA)
  Receive Date: 20210514
  Receipt Date: 20210514
  Transmission Date: 20210717
  Serious: Yes (Hospitalization)
  Sender: FDA-Public Use
  Company Number: CA-AKCEA THERAPEUTICS, INC.-2020IS001659

PATIENT
  Age: 60 Year
  Sex: Female
  Weight: 35.86 kg

DRUGS (15)
  1. TEGSEDI [Suspect]
     Active Substance: INOTERSEN SODIUM
     Indication: HEREDITARY NEUROPATHIC AMYLOIDOSIS
     Route: 058
     Dates: start: 20200421
  2. MIDODRINE [Suspect]
     Active Substance: MIDODRINE
     Route: 048
     Dates: start: 2020
  3. VAGISIL /00104701/ [Concomitant]
     Route: 061
  4. MACROBID [Suspect]
     Active Substance: NITROFURANTOIN\NITROFURANTOIN MONOHYDRATE
     Route: 065
  5. MIDODRINE [Suspect]
     Active Substance: MIDODRINE
     Route: 048
     Dates: start: 2020
  6. MIDODRINE [Suspect]
     Active Substance: MIDODRINE
     Route: 048
     Dates: start: 2020
  7. PEPTO?BISMOL [Suspect]
     Active Substance: BISMUTH SUBSALICYLATE
     Route: 065
  8. CLARITIN [Concomitant]
     Active Substance: LORATADINE
     Route: 048
  9. VENIXXA [Concomitant]
     Route: 065
  10. LAXATIVE /00064401/ [Concomitant]
     Route: 065
  11. ISSD (INTEGRATED SYRINGE SAFETY DEVICE) [Suspect]
     Active Substance: DEVICE
  12. MIDODRINE [Suspect]
     Active Substance: MIDODRINE
     Route: 048
  13. PEPTO?BISMOL [Suspect]
     Active Substance: BISMUTH SUBSALICYLATE
  14. ASCORBIC ACID W/VITAMIN D NOS [Concomitant]
     Route: 048
  15. TEGSEDI [Suspect]
     Active Substance: INOTERSEN SODIUM
     Route: 058

REACTIONS (25)
  - Abdominal distension [Unknown]
  - Constipation [Unknown]
  - Discomfort [Unknown]
  - Heart rate increased [Unknown]
  - Tongue discolouration [Unknown]
  - Ultrasound kidney abnormal [Unknown]
  - Swelling [Unknown]
  - Asthenia [Unknown]
  - Headache [Unknown]
  - Gastrointestinal disorder [Not Recovered/Not Resolved]
  - Urinary tract infection [Not Recovered/Not Resolved]
  - Dizziness [Unknown]
  - Malaise [Unknown]
  - Nausea [Unknown]
  - Diarrhoea [Unknown]
  - Faeces discoloured [Unknown]
  - Adverse drug reaction [Not Recovered/Not Resolved]
  - Staphylococcal infection [Not Recovered/Not Resolved]
  - Irritable bowel syndrome [Recovered/Resolved]
  - Pain [Unknown]
  - Hypotension [Unknown]
  - Pulse abnormal [Unknown]
  - Fatigue [Unknown]
  - Disturbance in attention [Unknown]
  - Blood pressure increased [Unknown]

NARRATIVE: CASE EVENT DATE: 202011
